FAERS Safety Report 16748758 (Version 2)
Quarter: 2019Q3

REPORT INFORMATION
  Report Type: Spontaneous
  Country: ID (occurrence: ID)
  Receive Date: 20190828
  Receipt Date: 20190910
  Transmission Date: 20191005
  Serious: Yes (Death)
  Sender: FDA-Public Use
  Company Number: ID-ROCHE-2392652

PATIENT
  Age: 50 Year

DRUGS (1)
  1. TECENTRIQ [Suspect]
     Active Substance: ATEZOLIZUMAB
     Indication: NON-SMALL CELL LUNG CANCER
     Route: 041

REACTIONS (9)
  - Pleural effusion [Fatal]
  - Respiratory failure [Fatal]
  - Nodule [Fatal]
  - Lung disorder [Fatal]
  - Anxiety [Fatal]
  - Condition aggravated [Fatal]
  - Restlessness [Fatal]
  - Neoplasm malignant [Fatal]
  - Pericardial effusion [Fatal]
